FAERS Safety Report 9286150 (Version 1)
Quarter: 2013Q2

REPORT INFORMATION
  Report Type: Spontaneous
  Country: US (occurrence: None)
  Receive Date: 20130510
  Receipt Date: 20130510
  Transmission Date: 20140414
  Serious: Yes (Hospitalization)
  Sender: FDA-Public Use
  Company Number: None

PATIENT
  Age: 70 Year
  Sex: Male
  Weight: 73 kg

DRUGS (8)
  1. CARBOPLATIN [Suspect]
  2. PACLITAXEL (TAXOL) [Suspect]
  3. BEVACIZUMAB (RHUMAB VEGF) (704865) [Suspect]
  4. ASPIRIN [Concomitant]
  5. DILTIAZEM HCL [Concomitant]
  6. ISOSORBIDE MONONITRATE CR [Concomitant]
  7. LISINOPRIL [Concomitant]
  8. NICOTINE TRANSDERMAL [Concomitant]

REACTIONS (3)
  - Syncope [None]
  - Oesophageal ulcer [None]
  - Duodenal ulcer [None]
